FAERS Safety Report 15209483 (Version 1)
Quarter: 2018Q3

REPORT INFORMATION
  Report Type: Spontaneous
  Country: US (occurrence: US)
  Receive Date: 20180727
  Receipt Date: 20180727
  Transmission Date: 20181010
  Serious: Yes (Other)
  Sender: FDA-Public Use
  Company Number: US-BAYER-2018-141810

PATIENT
  Age: 26 Year
  Sex: Female
  Weight: 80.73 kg

DRUGS (1)
  1. MIRENA [Suspect]
     Active Substance: LEVONORGESTREL
     Dosage: 20 MCG/24HR, CONT
     Route: 015
     Dates: start: 20140620, end: 20150407

REACTIONS (3)
  - Drug ineffective [None]
  - Pregnancy with contraceptive device [None]
  - Abortion spontaneous [None]

NARRATIVE: CASE EVENT DATE: 20150407
